FAERS Safety Report 14916688 (Version 1)
Quarter: 2018Q2

REPORT INFORMATION
  Report Type: Spontaneous
  Country: DE (occurrence: DE)
  Receive Date: 20180519
  Receipt Date: 20180519
  Transmission Date: 20180711
  Serious: Yes (Hospitalization)
  Sender: FDA-Public Use
  Company Number: DE-ESPERO PHARMACEUTICALS-ESP201805-000027

PATIENT
  Age: 85 Year
  Sex: Female

DRUGS (9)
  1. PANTOPRAZOLE [Concomitant]
     Active Substance: PANTOPRAZOLE
     Dosage: (1-0-0)
  2. NITROGLYCERIN. [Suspect]
     Active Substance: NITROGLYCERIN
  3. DONEPEZIL. [Concomitant]
     Active Substance: DONEPEZIL
     Dosage: 0-0-1-0
  4. CRESTOR [Concomitant]
     Active Substance: ROSUVASTATIN CALCIUM
     Dosage: 0-0-1-0/2 DAYS
  5. RISPERIDONE. [Concomitant]
     Active Substance: RISPERIDONE
     Dosage: 0.5-0-0.5-0
  6. QUETIAPINE. [Concomitant]
     Active Substance: QUETIAPINE
     Dosage: 2-2-2-0
  7. MELPERONE [Concomitant]
     Active Substance: MELPERONE
  8. NOVOTHYRAL [Concomitant]
     Active Substance: LEVOTHYROXINE SODIUM\LIOTHYRONINE SODIUM
     Dosage: 75/15 MICROGRAM, 0.5-0-0-0
  9. METFORMIN [Concomitant]
     Active Substance: METFORMIN HYDROCHLORIDE
     Dosage: 0-0-1-0

REACTIONS (2)
  - Syncope [Unknown]
  - Drug administration error [Unknown]

NARRATIVE: CASE EVENT DATE: 20160421
